FAERS Safety Report 8945727 (Version 2)
Quarter: 2013Q1

REPORT INFORMATION
  Report Type: Spontaneous
  Country: US (occurrence: US)
  Receive Date: 20121204
  Receipt Date: 20130102
  Transmission Date: 20140127
  Serious: No
  Sender: FDA-Public Use
  Company Number: US-AMGEN-USASP2012073168

PATIENT
  Age: 56 Year
  Sex: Female
  Weight: 65.76 kg

DRUGS (1)
  1. ENBREL [Suspect]
     Indication: PSORIASIS
     Dosage: 50 MG, 2 TIMES/WK
     Route: 058
     Dates: start: 20121004, end: 20121115

REACTIONS (5)
  - Local swelling [Recovered/Resolved]
  - Tenderness [Not Recovered/Not Resolved]
  - Oral pain [Not Recovered/Not Resolved]
  - Viral infection [Recovered/Resolved]
  - Lymphadenopathy [Recovered/Resolved]
